FAERS Safety Report 7513531-2 (Version None)
Quarter: 2011Q2

REPORT INFORMATION
  Report Type: 
  Country: None (occurrence: None)
  Receive Date: 20110531
  Receipt Date: 20110517
  Transmission Date: 20111010
  Serious: Yes (Life-Threatening, Other)
  Sender: FDA-Public Use
  Company Number: US-BAYER-201040907NA

PATIENT
  Age: 32 Year
  Sex: Female
  Weight: 81.179 kg

DRUGS (8)
  1. YASMIN [Suspect]
     Indication: ORAL CONTRACEPTION
     Dosage: UNK UNK, QD
     Route: 048
     Dates: start: 20040701, end: 20041201
  2. AZITHROMYCIN [Concomitant]
     Dosage: 250 MG, UNK
  3. YASMIN [Suspect]
     Indication: MENSTRUAL CYCLE MANAGEMENT
  4. LEVAQUIN [Concomitant]
     Indication: PYELONEPHRITIS
     Dosage: 500 MG, QD
  5. GLUCOPHAGE [Concomitant]
     Dosage: UNK UNK, BID
  6. VICODIN [Concomitant]
     Indication: PAIN
     Dosage: UNK
     Dates: start: 20040930
  7. METFORMIN HCL [Concomitant]
     Dosage: 500 MG, UNK
  8. HYDROCODONE BITARTRATE [Concomitant]

REACTIONS (7)
  - GALLBLADDER DISORDER [None]
  - CHOLELITHIASIS [None]
  - ASTHENIA [None]
  - FATIGUE [None]
  - ORGAN FAILURE [None]
  - PAIN [None]
  - CHOLECYSTITIS CHRONIC [None]
